FAERS Safety Report 4309004-0 (Version None)
Quarter: 2004Q1

REPORT INFORMATION
  Report Type: 
  Country: None (occurrence: None)
  Receive Date: 20040301
  Receipt Date: 20040212
  Transmission Date: 20041129
  Serious: Yes (Life-Threatening)
  Sender: FDA-Public Use
  Company Number: T03-GER-04646-01

PATIENT
  Age: 38 Year
  Sex: Female

DRUGS (6)
  1. ESCITALOPRAM OXALATE [Suspect]
     Indication: DEPRESSION
     Dosage: 20 MG QD PO
     Route: 048
     Dates: start: 20031021, end: 20031023
  2. ESCITALOPRAM OXALATE [Suspect]
     Indication: PANIC ATTACK
     Dosage: 20 MG QD PO
     Route: 048
     Dates: start: 20031021, end: 20031023
  3. ESCITALOPRAM OXALATE [Suspect]
     Indication: DEPRESSION
     Dates: start: 20030101
  4. ESCITALOPRAM OXALATE [Suspect]
     Indication: PANIC ATTACK
     Dates: start: 20030101
  5. ACCUPRIL [Concomitant]
  6. NEBILET (NEBIVOLOL HYDROCHLORIDE) [Concomitant]

REACTIONS (7)
  - AGITATION [None]
  - FOOD ALLERGY [None]
  - HEART RATE INCREASED [None]
  - HYPERSENSITIVITY [None]
  - RESTLESSNESS [None]
  - SWELLING FACE [None]
  - SWOLLEN TONGUE [None]
